FAERS Safety Report 24440242 (Version 2)
Quarter: 2024Q4

REPORT INFORMATION
  Report Type: Spontaneous
  Country: US (occurrence: US)
  Receive Date: 20241016
  Receipt Date: 20241121
  Transmission Date: 20250115
  Serious: No
  Sender: ABBVIE
  Company Number: US-ABBVIE-5962780

PATIENT
  Sex: Female

DRUGS (3)
  1. BOTOX [Suspect]
     Active Substance: ONABOTULINUMTOXINA
     Indication: Product used for unknown indication
     Dosage: TIME INTERVAL: AS NECESSARY: 68 UNITS
     Route: 065
     Dates: start: 20240926, end: 20240926
  2. BOTOX [Suspect]
     Active Substance: ONABOTULINUMTOXINA
     Indication: Product used for unknown indication
     Dosage: TIME INTERVAL: AS NECESSARY: 68 UNITS
     Route: 065
     Dates: start: 20240926, end: 20240926
  3. BOTOX [Suspect]
     Active Substance: ONABOTULINUMTOXINA
     Indication: Product used for unknown indication
     Dosage: TIME INTERVAL: AS NECESSARY: 68 UNITS
     Route: 065
     Dates: start: 20240926, end: 20240926

REACTIONS (1)
  - Drug ineffective [Unknown]
